FAERS Safety Report 5234955-2 (Version None)
Quarter: 2007Q1

REPORT INFORMATION
  Report Type: 
  Country: None (occurrence: None)
  Receive Date: 20070210
  Receipt Date: 20070201
  Transmission Date: 20070707
  Serious: Yes (Hospitalization)
  Sender: FDA-Public Use
  Company Number: DE-ABBOTT-07P-062-0358101-00

PATIENT
  Age: 54 Year
  Sex: Male
  Weight: 114 kg

DRUGS (8)
  1. ZEMPLAR [Suspect]
     Indication: HYPERPARATHYROIDISM SECONDARY
     Dates: start: 20060501, end: 20061011
  2. ANTIPHOSPHATE [Concomitant]
     Indication: HYPERPARATHYROIDISM SECONDARY
     Route: 048
  3. INSULIN HUMAN [Concomitant]
     Indication: DIABETES MELLITUS
     Route: 058
     Dates: start: 20000101
  4. CLOPIDOGREL BISULFATE [Concomitant]
     Indication: DRUG USE FOR UNKNOWN INDICATION
     Route: 048
     Dates: start: 20050827
  5. RAMIPRIL [Concomitant]
     Indication: DRUG USE FOR UNKNOWN INDICATION
     Route: 048
     Dates: start: 20060304
  6. AMLODIPINE [Concomitant]
     Indication: DRUG USE FOR UNKNOWN INDICATION
     Route: 048
     Dates: start: 20060304
  7. FUROSEMIDE [Concomitant]
     Indication: DRUG USE FOR UNKNOWN INDICATION
     Route: 048
     Dates: start: 20030723
  8. CARVEDILOL [Concomitant]
     Indication: DRUG USE FOR UNKNOWN INDICATION
     Route: 048
     Dates: start: 19991126

REACTIONS (1)
  - PARATHYROIDECTOMY [None]
